FAERS Safety Report 8256746-0 (Version None)
Quarter: 2012Q2

REPORT INFORMATION
  Report Type: 
  Country: None (occurrence: None)
  Receive Date: 20120403
  Receipt Date: 20120326
  Transmission Date: 20120825
  Serious: Yes (Other)
  Sender: FDA-Public Use
  Company Number: BR-PFIZER INC-2012076804

PATIENT
  Age: 28 Year
  Sex: Female
  Weight: 62 kg

DRUGS (2)
  1. AMOXICILLIN [Concomitant]
     Indication: CYST REMOVAL
     Dosage: UNK
  2. NORDETTE-21 [Suspect]
     Indication: CONTRACEPTION
     Dosage: [LEVONORGESTREL 0.15MG] / [ETHINYL ESTRADIOL 0.03MG], ONCE DAILY
     Route: 048
     Dates: start: 20060101, end: 20120201

REACTIONS (4)
  - SURGERY [None]
  - VAGINAL DISCHARGE [None]
  - CYST [None]
  - ABNORMAL WITHDRAWAL BLEEDING [None]
